FAERS Safety Report 22313112 (Version 5)
Quarter: 2024Q1

REPORT INFORMATION
  Report Type: Report from Study
  Country: US (occurrence: US)
  Receive Date: 20230512
  Receipt Date: 20240306
  Transmission Date: 20240410
  Serious: Yes (Other)
  Sender: FDA-Public Use
  Company Number: US-UCBSA-2023024194

PATIENT
  Age: 28 Year
  Sex: Male
  Weight: 75.283 kg

DRUGS (5)
  1. FINTEPLA [Suspect]
     Active Substance: FENFLURAMINE
     Indication: Lennox-Gastaut syndrome
     Dosage: 0.34 MILLIGRAM/KILOGRAM/DAY, 28MG/DAY
     Route: 048
     Dates: start: 202105, end: 202305
  2. FINTEPLA [Suspect]
     Active Substance: FENFLURAMINE
     Dosage: 5.8 MILLILITER, 2X/DAY (BID)
     Route: 048
     Dates: start: 20210603
  3. FINTEPLA [Suspect]
     Active Substance: FENFLURAMINE
     Dosage: 4.35 MILLILITER, 2X/DAY (BID)
     Route: 048
     Dates: start: 20230510
  4. FINTEPLA [Suspect]
     Active Substance: FENFLURAMINE
     Dosage: 2.9 MILLILITER, 2X/DAY (BID)
     Route: 048
  5. FINTEPLA [Suspect]
     Active Substance: FENFLURAMINE
     Dosage: 1.45 MILLILITER, 2X/DAY (BID)
     Route: 048

REACTIONS (3)
  - Mitral valve incompetence [Not Recovered/Not Resolved]
  - Tricuspid valve incompetence [Not Recovered/Not Resolved]
  - Overdose [Unknown]

NARRATIVE: CASE EVENT DATE: 20220628
